FAERS Safety Report 15776482 (Version 1)
Quarter: 2018Q4

REPORT INFORMATION
  Report Type: Spontaneous
  Country: US (occurrence: US)
  Receive Date: 20181228
  Receipt Date: 20181228
  Transmission Date: 20190205
  Serious: Yes (Other)
  Sender: FDA-Public Use
  Company Number: None

PATIENT
  Age: 20 Year
  Sex: Male
  Weight: 67.5 kg

DRUGS (3)
  1. DIVALPROEX [Concomitant]
     Active Substance: DIVALPROEX SODIUM
  2. LAMICTAL [Concomitant]
     Active Substance: LAMOTRIGINE
  3. DIVALPROEX DELAYED RELEASE 250 MG [Suspect]
     Active Substance: DIVALPROEX SODIUM
     Indication: EPILEPSY
     Dosage: ?          QUANTITY:1 TABLET(S);?
     Route: 048
     Dates: start: 20181204, end: 20181228

REACTIONS (2)
  - Therapeutic response changed [None]
  - Epilepsy [None]

NARRATIVE: CASE EVENT DATE: 20181228
